FAERS Safety Report 25477388 (Version 3)
Quarter: 2025Q3

REPORT INFORMATION
  Report Type: Report from Study
  Country: US (occurrence: US)
  Receive Date: 20250625
  Receipt Date: 20250723
  Transmission Date: 20251021
  Serious: Yes (Death, Other)
  Sender: SUNOVION
  Company Number: US-SUMITOMO PHARMA SWITZERLAND GMBH-2025SPA007004

PATIENT

DRUGS (35)
  1. ORGOVYX [Suspect]
     Active Substance: RELUGOLIX
     Indication: Prostate cancer
     Route: 048
     Dates: start: 202504
  2. ORGOVYX [Suspect]
     Active Substance: RELUGOLIX
     Dosage: 120 MG, QD
     Route: 048
     Dates: start: 202504
  3. CLINDAMYCIN [Concomitant]
     Active Substance: CLINDAMYCIN
     Route: 065
  4. CLOBETASOL PROPIONATE [Concomitant]
     Active Substance: CLOBETASOL PROPIONATE
     Route: 065
  5. CREON [Concomitant]
     Active Substance: PANCRELIPASE AMYLASE\PANCRELIPASE LIPASE\PANCRELIPASE PROTEASE
     Route: 065
  6. DESONIDE [Concomitant]
     Active Substance: DESONIDE
     Route: 065
  7. DEXAMETHASONE [Concomitant]
     Active Substance: DEXAMETHASONE
     Route: 065
  8. ELIQUIS [Concomitant]
     Active Substance: APIXABAN
     Route: 065
  9. ERYTHROMYCIN [Concomitant]
     Active Substance: ERYTHROMYCIN
     Route: 065
  10. FOLIC ACID [Concomitant]
     Active Substance: FOLIC ACID
     Route: 065
  11. HYDROCORTISONE [Concomitant]
     Active Substance: HYDROCORTISONE
     Route: 065
  12. IRON [Concomitant]
     Active Substance: IRON
     Route: 065
  13. KETOCONAZOLE [Concomitant]
     Active Substance: KETOCONAZOLE
     Route: 065
  14. LABETALOL [Concomitant]
     Active Substance: LABETALOL
     Route: 065
  15. METHYLPREDNISOLONE [Concomitant]
     Active Substance: METHYLPREDNISOLONE
     Route: 065
  16. MUPIROCIN [Concomitant]
     Active Substance: MUPIROCIN
     Route: 065
  17. NYSTATIN [Concomitant]
     Active Substance: NYSTATIN
     Route: 065
  18. ONDANSETRON [Concomitant]
     Active Substance: ONDANSETRON
     Route: 065
  19. VITAMINS [Concomitant]
     Active Substance: VITAMINS
     Route: 065
  20. PANTOPRAZOLE SODIUM [Concomitant]
     Active Substance: PANTOPRAZOLE SODIUM
     Route: 065
  21. PENICILLIN V POTASSIUM [Concomitant]
     Active Substance: PENICILLIN V POTASSIUM
     Route: 065
  22. PROCHLORPERAZINE [Concomitant]
     Active Substance: PROCHLORPERAZINE
     Route: 065
  23. ROSUVASTATIN CALCIUM [Concomitant]
     Active Substance: ROSUVASTATIN CALCIUM
     Route: 065
  24. SIROLIMUS [Concomitant]
     Active Substance: SIROLIMUS
     Route: 065
  25. TAMSULOSIN [Concomitant]
     Active Substance: TAMSULOSIN
     Route: 065
  26. TRIAMCINOLONE ACETONIDE [Concomitant]
     Active Substance: TRIAMCINOLONE ACETONIDE
     Route: 065
  27. TYLENOL [Concomitant]
     Active Substance: ACETAMINOPHEN
     Route: 065
  28. TIBSOVO [Concomitant]
     Active Substance: IVOSIDENIB
     Route: 065
  29. ACYCLOVIR [Concomitant]
     Active Substance: ACYCLOVIR
     Route: 065
  30. ATOVAQUONE [Concomitant]
     Active Substance: ATOVAQUONE
     Route: 065
  31. BRIMONIDINE TARTRATE [Concomitant]
     Active Substance: BRIMONIDINE TARTRATE
     Route: 065
  32. CAFFEINE [Concomitant]
     Active Substance: CAFFEINE
     Route: 065
  33. CALCIUM CARBONATE [Concomitant]
     Active Substance: CALCIUM CARBONATE
     Route: 065
  34. CALCIUM [Concomitant]
     Active Substance: CALCIUM
     Route: 065
  35. BENADRYL [Concomitant]
     Active Substance: DIPHENHYDRAMINE HYDROCHLORIDE
     Route: 065

REACTIONS (3)
  - Death [Fatal]
  - Vision blurred [Unknown]
  - Headache [Unknown]
